FAERS Safety Report 9601923 (Version 1)
Quarter: 2013Q4

REPORT INFORMATION
  Report Type: Spontaneous
  Country: US (occurrence: None)
  Receive Date: 20131004
  Receipt Date: 20131004
  Transmission Date: 20140711
  Serious: Yes (Hospitalization)
  Sender: FDA-Public Use
  Company Number: None

PATIENT
  Age: 73 Year
  Sex: Male
  Weight: 107 kg

DRUGS (9)
  1. WARFARIN [Suspect]
     Indication: DEEP VEIN THROMBOSIS
     Dosage: 5 MG ALT WITH 2.5 MG
     Route: 048
  2. ERGOCALCIFEROL [Concomitant]
  3. FERROUS SULFATE [Concomitant]
  4. HYDRALAZINE [Concomitant]
  5. INSULINE GLARGINE [Concomitant]
  6. INSULIN LISPRO [Concomitant]
  7. LABETALOL [Concomitant]
  8. PRAVASTATIN [Concomitant]
  9. MULTIVITAMIN [Concomitant]

REACTIONS (5)
  - Anaemia [None]
  - Rectal haemorrhage [None]
  - International normalised ratio increased [None]
  - Mass [None]
  - Radiation proctitis [None]
